FAERS Safety Report 24135049 (Version 1)
Quarter: 2024Q3

REPORT INFORMATION
  Report Type: Report from Study
  Country: CN (occurrence: CN)
  Receive Date: 20240725
  Receipt Date: 20240725
  Transmission Date: 20241017
  Serious: Yes (Other)
  Sender: ROCHE
  Company Number: CN-ROCHE-10000030124

PATIENT
  Sex: Female

DRUGS (3)
  1. PERTUZUMAB [Suspect]
     Active Substance: PERTUZUMAB
     Indication: HER2 positive breast cancer
     Dosage: WAS ADMINISTERED AS A 90-MINUTE INTRAVENOUS INFUSION ON DAY 1 OF THE FIRST CYCLE, FOLLOWED BY A MAIN
     Route: 042
  2. PACLITAXEL [Suspect]
     Active Substance: PACLITAXEL
     Indication: HER2 positive breast cancer
     Dosage: OVER 30 MINUTES ON DAY 1 OF EACH 21-DAY CYCLE FOR A TOTAL OF 4 CYCLES.
     Route: 042
  3. PYROTINIB [Suspect]
     Active Substance: PYROTINIB
     Indication: HER2 positive breast cancer
     Dosage: ON THE FIRST DAY OF EACH TREATMENT CYCLE.
     Route: 048

REACTIONS (9)
  - Diarrhoea [Unknown]
  - Anaemia [Unknown]
  - Neutropenia [Unknown]
  - Rash [Unknown]
  - Aspartate aminotransferase increased [Unknown]
  - Alanine aminotransferase increased [Unknown]
  - Fatigue [Unknown]
  - Mouth ulceration [Unknown]
  - Nausea [Unknown]
